FAERS Safety Report 9310605 (Version 2)
Quarter: 2013Q3

REPORT INFORMATION
  Report Type: Spontaneous
  Country: JP (occurrence: JP)
  Receive Date: 20130527
  Receipt Date: 20130822
  Transmission Date: 20140515
  Serious: Yes (Death, Other)
  Sender: FDA-Public Use
  Company Number: JP-PFIZER INC-2013157521

PATIENT
  Age: 82 Year
  Sex: Male
  Weight: 37.6 kg

DRUGS (10)
  1. DALACIN [Suspect]
     Indication: STAPHYLOCOCCAL INFECTION
     Dosage: 600 MG, 2X/DAY
     Route: 041
     Dates: start: 20130402, end: 20130408
  2. FINIBAX [Suspect]
     Indication: STAPHYLOCOCCAL INFECTION
     Dosage: 0.25 G, 2X/DAY
     Route: 041
     Dates: start: 20130402, end: 20130411
  3. VANCOMYCIN [Suspect]
     Indication: STAPHYLOCOCCAL INFECTION
     Dosage: 0.5 G, ALTERNATE DAY
     Route: 041
     Dates: start: 20130403, end: 20130407
  4. JZOLOFT [Concomitant]
     Dosage: 25 MG, UNK
  5. AMIODARONE HYDROCHLORIDE [Concomitant]
     Dosage: 100 MG, RAPIDLY DISINTEGRATING TABLET
  6. SERENACE [Concomitant]
     Dosage: 5 MG,  INJECTION
  7. LYRICA [Concomitant]
     Dosage: 25 MG, UNK
  8. VASOLAN [Concomitant]
     Dosage: 40 MG, UNK
  9. PRINK [Concomitant]
     Dosage: 10 MCG INJECTION
  10. TRYPTANOL [Concomitant]
     Dosage: 25 MG, UNK

REACTIONS (1)
  - Toxic epidermal necrolysis [Fatal]
